FAERS Safety Report 18707751 (Version 2)
Quarter: 2021Q1

REPORT INFORMATION
  Report Type: Spontaneous
  Country: RU (occurrence: RU)
  Receive Date: 20210106
  Receipt Date: 20210108
  Transmission Date: 20210419
  Serious: Yes (Death)
  Sender: FDA-Public Use
  Company Number: RU-009507513-2101RUS000369

PATIENT

DRUGS (2)
  1. PEMBROLIZUMAB. [Suspect]
     Active Substance: PEMBROLIZUMAB
     Dosage: UNK, FIRST LINE
  2. AXITINIB [Suspect]
     Active Substance: AXITINIB
     Dosage: 10.0 (UNITS NOT PROVIDED) IN A DAY, FIRST LINE

REACTIONS (1)
  - Viral infection [Fatal]
